FAERS Safety Report 17475210 (Version 3)
Quarter: 2020Q2

REPORT INFORMATION
  Report Type: Report from Study
  Country: IL (occurrence: IL)
  Receive Date: 20200228
  Receipt Date: 20200424
  Transmission Date: 20200713
  Serious: Yes (Other)
  Sender: FDA-Public Use
  Company Number: IL-EMD SERONO-9144538

PATIENT
  Age: 43 Year
  Sex: Female
  Weight: 70 kg

DRUGS (5)
  1. MAVENCLAD [Suspect]
     Active Substance: CLADRIBINE
     Indication: RELAPSING MULTIPLE SCLEROSIS
     Dosage: M1 THERAPY.
     Route: 048
     Dates: start: 20200127
  2. MAVENCLAD [Suspect]
     Active Substance: CLADRIBINE
     Dosage: M2 THERAPY.
     Route: 048
  3. OPTALGIN [Concomitant]
     Active Substance: METAMIZOLE
     Indication: PRODUCT USED FOR UNKNOWN INDICATION
  4. LORIVAN [Concomitant]
     Active Substance: LORAZEPAM
     Indication: PRODUCT USED FOR UNKNOWN INDICATION
  5. SYNTHROID [Concomitant]
     Active Substance: LEVOTHYROXINE SODIUM
     Indication: PRODUCT USED FOR UNKNOWN INDICATION
     Dosage: STRENGTH: 100 (UNSPECIFIED UNIT)

REACTIONS (5)
  - Haematoma [Unknown]
  - Pain in extremity [Unknown]
  - Thrombocytopenia [Not Recovered/Not Resolved]
  - Rash [Recovering/Resolving]
  - Rash pustular [Unknown]

NARRATIVE: CASE EVENT DATE: 20200201
